FAERS Safety Report 10254499 (Version 1)
Quarter: 2014Q2

REPORT INFORMATION
  Report Type: Spontaneous
  Country: FR (occurrence: FR)
  Receive Date: 20140624
  Receipt Date: 20140624
  Transmission Date: 20141212
  Serious: Yes (Hospitalization)
  Sender: FDA-Public Use
  Company Number: FR-BRISTOL-MYERS SQUIBB COMPANY-21045091

PATIENT
  Age: 56 Year
  Sex: Female

DRUGS (9)
  1. GLUCOPHAGE [Suspect]
     Indication: DIABETES MELLITUS
     Route: 048
     Dates: start: 20140505, end: 20140509
  2. CEFTRIAXONE [Suspect]
  3. AMIKACIN [Suspect]
  4. LANTUS [Concomitant]
     Dosage: 1DF: 30UNITS
     Dates: start: 20140106
  5. AUGMENTIN [Concomitant]
  6. DIFFU-K [Concomitant]
     Dates: end: 20140106
  7. LEVEMIR [Concomitant]
     Dosage: 1DF: 26UNITS
     Dates: end: 20140106
  8. AERIUS [Concomitant]
  9. ATARAX [Concomitant]

REACTIONS (5)
  - Hepatocellular injury [Recovering/Resolving]
  - Cholestasis [Recovering/Resolving]
  - Aspartate aminotransferase increased [Recovering/Resolving]
  - Alanine aminotransferase increased [Recovering/Resolving]
  - Blood alkaline phosphatase increased [Recovering/Resolving]
